FAERS Safety Report 7665005-6 (Version None)
Quarter: 2011Q3

REPORT INFORMATION
  Report Type: 
  Country: None (occurrence: None)
  Receive Date: 20110806
  Receipt Date: 20110214
  Transmission Date: 20111222
  Serious: No
  Sender: FDA-Public Use
  Company Number: US-ABBOTT-11P-163-0704994-00

PATIENT
  Sex: Female
  Weight: 49.94 kg

DRUGS (2)
  1. VIT D 3 [Concomitant]
     Indication: PRODUCT USED FOR UNKNOWN INDICATION
  2. NIASPAN [Suspect]
     Indication: TYPE IIA HYPERLIPIDAEMIA
     Dosage: DAILY AT BEDTIME
     Dates: start: 20110101

REACTIONS (3)
  - FEELING HOT [None]
  - FLUSHING [None]
  - PARAESTHESIA [None]
